FAERS Safety Report 5498683-0 (Version None)
Quarter: 2007Q4

REPORT INFORMATION
  Report Type: 
  Country: None (occurrence: None)
  Receive Date: 20071024
  Receipt Date: 20071024
  Transmission Date: 20080405
  Serious: No
  Sender: FDA-Public Use
  Company Number: None

PATIENT
  Age: 69 Year
  Sex: Male

DRUGS (1)
  1. DILTIAZEM [Suspect]
     Dosage: 240MG EVERY DAY PO
     Route: 048
     Dates: start: 20071003, end: 20071015

REACTIONS (2)
  - BRADYCARDIA [None]
  - HYPOTENSION [None]
